FAERS Safety Report 6157133-1 (Version None)
Quarter: 2009Q2

REPORT INFORMATION
  Report Type: 
  Country: None (occurrence: None)
  Receive Date: 20090413
  Receipt Date: 20090407
  Transmission Date: 20091009
  Serious: Yes (Death)
  Sender: FDA-Public Use
  Company Number: B0569199A

PATIENT
  Sex: Female

DRUGS (5)
  1. TOPOTECAN HYDROCHLORIDE INFUSION (GENERIC) (TOPOTECAN) [Suspect]
     Indication: CERVIX CARCINOMA
     Dosage: CYCLIC / INTRAVENOUS
     Route: 042
  2. CETUXIMAB INFUSION (CETUXIMAB) [Suspect]
     Indication: CERVIX CARCINOMA
     Dosage: CYCLIC / INTRAVENOUS
     Route: 042
  3. CISPLATIN [Suspect]
     Dosage: CYCLIC / INTRAVENOUS
     Route: 042
  4. ANTIHISTAMINE [Concomitant]
  5. ANTI-EMETIC [Concomitant]

REACTIONS (2)
  - DRUG TOXICITY [None]
  - PULMONARY EMBOLISM [None]
